FAERS Safety Report 18902575 (Version 1)
Quarter: 2021Q1

REPORT INFORMATION
  Report Type: Spontaneous
  Country: US (occurrence: US)
  Receive Date: 20210217
  Receipt Date: 20210217
  Transmission Date: 20210420
  Serious: No
  Sender: FDA-Public Use
  Company Number: US-CIPLA LTD.-2020US08735

PATIENT

DRUGS (1)
  1. DICLOFENAC [Suspect]
     Active Substance: DICLOFENAC
     Indication: ARTHRITIS
     Dosage: UNK, QD (TO THE LEFT KNEE)
     Route: 061
     Dates: start: 2018

REACTIONS (5)
  - Rash macular [Not Recovered/Not Resolved]
  - Skin ulcer [Recovered/Resolved]
  - Rash pruritic [Unknown]
  - Rash [Unknown]
  - Dry skin [Unknown]

NARRATIVE: CASE EVENT DATE: 2020
